FAERS Safety Report 6475998-0 (Version None)
Quarter: 2009Q4

REPORT INFORMATION
  Report Type: 
  Country: None (occurrence: None)
  Receive Date: 20091204
  Receipt Date: 20091126
  Transmission Date: 20100525
  Serious: Yes (Disabling)
  Sender: FDA-Public Use
  Company Number: DE-SANOFI-AVENTIS-F04200900119

PATIENT
  Age: 57 Year
  Sex: Male

DRUGS (15)
  1. OXALIPLATIN [Suspect]
     Route: 041
     Dates: start: 20090618, end: 20090618
  2. OXALIPLATIN [Suspect]
     Route: 041
     Dates: start: 20090723, end: 20090723
  3. DOCETAXEL [Suspect]
     Indication: GASTROOESOPHAGEAL CANCER
     Route: 041
     Dates: start: 20090723, end: 20090723
  4. DOCETAXEL [Suspect]
     Route: 041
     Dates: start: 20090618, end: 20090618
  5. FLUOROURACIL [Suspect]
     Indication: GASTROOESOPHAGEAL CANCER
     Route: 041
     Dates: start: 20090723, end: 20090723
  6. FLUOROURACIL [Suspect]
     Route: 041
     Dates: start: 20090618, end: 20090618
  7. FOLINIC ACID [Suspect]
     Indication: GASTROOESOPHAGEAL CANCER
     Route: 041
     Dates: start: 20090723, end: 20090723
  8. FOLINIC ACID [Suspect]
     Route: 041
     Dates: start: 20090618, end: 20090618
  9. DEXAMETHASONE TAB [Concomitant]
     Indication: PREMEDICATION
     Route: 065
  10. PALONOSETRON [Concomitant]
     Indication: PREMEDICATION
     Route: 065
  11. APREPITANT [Concomitant]
     Indication: PREMEDICATION
     Route: 048
  12. METOCLOPRAMIDE [Concomitant]
     Indication: PREMEDICATION
     Route: 065
  13. CALCIUM GLUCONATE [Concomitant]
     Indication: DRUG USE FOR UNKNOWN INDICATION
     Route: 065
  14. MAGNESIUM SULFATE [Concomitant]
     Indication: DRUG USE FOR UNKNOWN INDICATION
     Route: 065
  15. METFORMIN HCL [Concomitant]
     Indication: DRUG USE FOR UNKNOWN INDICATION
     Route: 065

REACTIONS (1)
  - PERONEAL NERVE PALSY [None]
